FAERS Safety Report 9514011 (Version 3)
Quarter: 2014Q1

REPORT INFORMATION
  Report Type: Spontaneous
  Country: US (occurrence: US)
  Receive Date: 20130910
  Receipt Date: 20140305
  Transmission Date: 20141002
  Serious: Yes (Hospitalization)
  Sender: FDA-Public Use
  Company Number: US-B.I. PHARMACEUTICALS,INC./RIDGEFIELD-2013-BI-27295BP

PATIENT
  Sex: Female
  Weight: 70.31 kg

DRUGS (11)
  1. PRADAXA [Suspect]
     Indication: ATRIAL FIBRILLATION
     Dosage: 300 MG
     Route: 065
     Dates: start: 20110920, end: 20111015
  2. PRADAXA [Suspect]
     Indication: ATRIAL FLUTTER
  3. ATORVASTATIN [Concomitant]
     Route: 065
  4. AMLODIPINE BESLATE [Concomitant]
     Indication: HYPERTENSION
     Dosage: 5 MG
     Route: 048
  5. WARFARIN SOD [Concomitant]
     Route: 065
  6. LOTENSIN HCTZ [Concomitant]
     Indication: HYPERTENSION
     Route: 048
  7. LOPRESSOR [Concomitant]
     Indication: HYPERTENSION
     Dosage: 200 MG
     Route: 048
     Dates: end: 20111015
  8. CALCIUM AND VITAMIN D [Concomitant]
     Route: 065
  9. LANTUS [Concomitant]
     Dosage: 10 U
     Route: 065
  10. GLIPIZIDE [Concomitant]
     Indication: DIABETES MELLITUS
     Dosage: 10 MG
     Route: 048
  11. ASPIRIN [Concomitant]
     Dosage: 81 MG
     Route: 048

REACTIONS (3)
  - Gastrointestinal haemorrhage [Unknown]
  - Haemorrhagic anaemia [Unknown]
  - Renal failure acute [Recovered/Resolved]
